FAERS Safety Report 4378746-3 (Version None)
Quarter: 2004Q2

REPORT INFORMATION
  Report Type: 
  Country: None (occurrence: None)
  Receive Date: 20040609
  Receipt Date: 20040525
  Transmission Date: 20050107
  Serious: Yes (Hospitalization)
  Sender: FDA-Public Use
  Company Number: USA040568429

PATIENT
  Age: 61 Year
  Sex: Female
  Weight: 109 kg

DRUGS (2)
  1. HUMALOG [Suspect]
     Dates: start: 19990101
  2. HUMULIN 70/30 [Suspect]
     Dosage: 155 U DAY
     Dates: start: 20040301

REACTIONS (5)
  - BLOOD GLUCOSE DECREASED [None]
  - DEVICE FAILURE [None]
  - MEDICATION ERROR [None]
  - PHARMACEUTICAL PRODUCT COMPLAINT [None]
  - TRIGGER FINGER [None]
